FAERS Safety Report 6942740-6 (Version None)
Quarter: 2010Q3

REPORT INFORMATION
  Report Type: 
  Country: None (occurrence: None)
  Receive Date: 20100826
  Receipt Date: 20100817
  Transmission Date: 20110219
  Serious: Yes (Other)
  Sender: FDA-Public Use
  Company Number: BR-JNJFOC-20100806858

PATIENT
  Sex: Female

DRUGS (5)
  1. DAKTARIN [Suspect]
     Route: 065
  2. DAKTARIN [Suspect]
     Indication: INFECTION
     Route: 065
  3. VITAMIN B COMPLEX CAP [Concomitant]
     Route: 065
  4. SULFAMETOXAZOL [Concomitant]
     Route: 065
  5. VITAMIN D [Concomitant]
     Route: 065

REACTIONS (4)
  - DRUG DISPENSING ERROR [None]
  - HAEMATEMESIS [None]
  - LEUKAEMIA [None]
  - WRONG DRUG ADMINISTERED [None]
